FAERS Safety Report 7040505-0 (Version None)
Quarter: 2010Q4

REPORT INFORMATION
  Report Type: 
  Country: None (occurrence: None)
  Receive Date: 20101008
  Receipt Date: 20101008
  Transmission Date: 20110411
  Serious: No
  Sender: FDA-Public Use
  Company Number: None

PATIENT
  Age: 3 Year
  Sex: Female
  Weight: 13.1543 kg

DRUGS (1)
  1. SULFAMETHOXAZOLE AND TRIMETHOPRIM [Suspect]
     Indication: REFLUX NEPHROPATHY
     Dosage: 1 1/4 TSP BEDTIME MOUTH (2ND WK OF AUG - 1ST WK OF SEPT)
     Route: 048

REACTIONS (3)
  - FEAR [None]
  - HALLUCINATION, VISUAL [None]
  - NIGHTMARE [None]
